FAERS Safety Report 18071516 (Version 1)
Quarter: 2020Q3

REPORT INFORMATION
  Report Type: Spontaneous
  Country: FR (occurrence: FR)
  Receive Date: 20200727
  Receipt Date: 20200727
  Transmission Date: 20201103
  Serious: Yes (Other)
  Sender: FDA-Public Use
  Company Number: NVSC2020FR204507

PATIENT
  Age: 69 Year
  Sex: Female

DRUGS (14)
  1. DEXCHLORPHENIRAMIN [Suspect]
     Active Substance: DEXCHLORPHENIRAMINE MALEATE
     Indication: CHEMOTHERAPY SIDE EFFECT PROPHYLAXIS
     Dosage: 5 MG (21 DAY)
     Route: 048
     Dates: start: 20200424, end: 20200703
  2. METHYLPREDNISOLONE. [Suspect]
     Active Substance: METHYLPREDNISOLONE
     Indication: CHEMOTHERAPY SIDE EFFECT PROPHYLAXIS
     Dosage: 60 MG (21 DAY)
     Route: 048
     Dates: start: 20200424, end: 20200703
  3. VITAMIN D3 [Concomitant]
     Active Substance: CHOLECALCIFEROL
     Indication: VITAMIN D DEFICIENCY
     Dosage: 1 DF, Q3MO
     Route: 048
  4. PERINDOPRIL [Concomitant]
     Active Substance: PERINDOPRIL
     Indication: HYPERTENSION
     Dosage: 8 MG, QD
     Route: 048
  5. PARIET [Concomitant]
     Active Substance: RABEPRAZOLE SODIUM
     Indication: GASTROOESOPHAGEAL REFLUX DISEASE
     Dosage: 1 DF, UNKNOWN
     Route: 048
  6. APREPITANT. [Suspect]
     Active Substance: APREPITANT
     Indication: PROPHYLAXIS OF NAUSEA AND VOMITING
     Dosage: 125 MG (21 DAY)
     Route: 048
     Dates: start: 20200424, end: 20200703
  7. INNOHEP [Concomitant]
     Active Substance: TINZAPARIN SODIUM
     Indication: PRODUCT USED FOR UNKNOWN INDICATION
     Dosage: 13000 IU, QD
     Route: 058
  8. LACTITOL [Concomitant]
     Active Substance: LACTITOL
     Indication: CONSTIPATION
     Dosage: UNK
     Route: 048
  9. ONDANSETRON [Suspect]
     Active Substance: ONDANSETRON
     Indication: PROPHYLAXIS OF NAUSEA AND VOMITING
     Dosage: 8 MG,  (21 DAY)
     Route: 048
     Dates: start: 20200424, end: 20200703
  10. CIMETIDINE [Suspect]
     Active Substance: CIMETIDINE
     Indication: CHEMOTHERAPY SIDE EFFECT PROPHYLAXIS
     Dosage: 200 MG,  (21 DAY)
     Route: 048
     Dates: start: 20200424, end: 20200703
  11. EPORATIO [Concomitant]
     Active Substance: ERYTHROPOIETIN
     Indication: PRODUCT USED FOR UNKNOWN INDICATION
     Dosage: UNK (INCONNUE)
     Route: 065
     Dates: start: 20200604
  12. CARBOPLATINE [Suspect]
     Active Substance: CARBOPLATIN
     Indication: OVARIAN CANCER
     Dosage: 380 MG,  (21 DAY)
     Route: 042
     Dates: start: 20200424, end: 20200703
  13. PACLITAXEL. [Suspect]
     Active Substance: PACLITAXEL
     Indication: OVARIAN CANCER
     Dosage: 246 MG (21 DAY)
     Route: 042
     Dates: start: 20200424
  14. KARDEGIC [Concomitant]
     Active Substance: ASPIRIN DL-LYSINE
     Indication: PRODUCT USED FOR UNKNOWN INDICATION
     Dosage: 1 DF, QD
     Route: 048

REACTIONS (3)
  - Hypertension [Recovered/Resolved]
  - Erythema [Recovered/Resolved]
  - Erythema [Recovered/Resolved]

NARRATIVE: CASE EVENT DATE: 20200605
